FAERS Safety Report 11650407 (Version 2)
Quarter: 2016Q1

REPORT INFORMATION
  Report Type: Spontaneous
  Country: US (occurrence: US)
  Receive Date: 20151021
  Receipt Date: 20160111
  Transmission Date: 20160525
  Serious: Yes (Hospitalization)
  Sender: FDA-Public Use
  Company Number: US-SEATTLE GENETICS-2015SGN00756

PATIENT
  Age: 82 Year
  Sex: Female

DRUGS (1)
  1. ADCETRIS [Suspect]
     Active Substance: BRENTUXIMAB VEDOTIN
     Indication: ANAPLASTIC LARGE CELL LYMPHOMA T- AND NULL-CELL TYPES
     Route: 042

REACTIONS (3)
  - Neutropenia [Unknown]
  - Fatigue [Unknown]
  - Off label use [Unknown]
